FAERS Safety Report 10013850 (Version 1)
Quarter: 2014Q1

REPORT INFORMATION
  Report Type: Spontaneous
  Country: DE (occurrence: DE)
  Receive Date: 20140316
  Receipt Date: 20140316
  Transmission Date: 20141002
  Serious: Yes (Other)
  Sender: FDA-Public Use
  Company Number: DE-MYLANLABS-2014S1004791

PATIENT
  Sex: Female

DRUGS (7)
  1. MOLSIDOMINE [Suspect]
     Indication: CORONARY ARTERY DISEASE
     Dosage: TWICE DAILY
     Route: 048
     Dates: start: 20120813, end: 20121001
  2. CLOPIDOGREL [Suspect]
     Indication: THROMBOSIS PROPHYLAXIS
     Dosage: 75 [MG/D ]
     Route: 048
     Dates: start: 20120813, end: 20121001
  3. SIMVASTATIN [Suspect]
     Indication: HYPERLIPIDAEMIA
     Route: 048
     Dates: start: 20120813, end: 20121001
  4. RAMIPRIL [Suspect]
     Indication: HYPERTENSION
     Dosage: 2.5 [MG/D ]
     Route: 048
     Dates: start: 20120813
  5. HERZ ASS [Concomitant]
     Indication: THROMBOSIS PROPHYLAXIS
     Dosage: 100 [MG/D ]
     Route: 048
     Dates: start: 20120813, end: 20121001
  6. OMEPRAZOLE [Concomitant]
     Indication: GASTRITIS PROPHYLAXIS
     Dosage: 80 [MG/D ]
     Route: 048
     Dates: start: 20120813, end: 20121001
  7. METOPROLOL [Concomitant]
     Indication: HYPERTENSION
     Dosage: 50 [MG/D ]
     Route: 048
     Dates: start: 20120813, end: 20121001

REACTIONS (2)
  - Abortion missed [Recovered/Resolved]
  - Exposure during pregnancy [Recovered/Resolved]
